FAERS Safety Report 4964832-3 (Version None)
Quarter: 2006Q1

REPORT INFORMATION
  Report Type: 
  Country: None (occurrence: None)
  Receive Date: 20060207
  Receipt Date: 20050606
  Transmission Date: 20060701
  Serious: No
  Sender: FDA-Public Use
  Company Number: 243826

PATIENT
  Age: 68 Year
  Sex: Female

DRUGS (6)
  1. NOVOLOG [Suspect]
     Indication: INSULIN-REQUIRING TYPE II DIABETES MELLITUS
     Dosage: 10 IU, SINGLE, SUBCUTANEOUS
     Route: 058
     Dates: start: 20050428, end: 20050428
  2. SYNTHROID [Concomitant]
  3. GLUCOFORMIN (METFORMIN HYDROCHLORIDE) [Concomitant]
  4. CRESTOR /NET/ (ROSUVASTATIN CALCIUM) [Concomitant]
  5. HYZAAR [Concomitant]
  6. VITAMINS [Concomitant]

REACTIONS (2)
  - PHARYNGEAL OEDEMA [None]
  - URTICARIA [None]
